FAERS Safety Report 5405568-4 (Version None)
Quarter: 2007Q3

REPORT INFORMATION
  Report Type: 
  Country: None (occurrence: None)
  Receive Date: 20070803
  Receipt Date: 20070725
  Transmission Date: 20080115
  Serious: Yes (Other)
  Sender: FDA-Public Use
  Company Number: GB-PFIZER INC-2007063154

PATIENT
  Sex: Female

DRUGS (1)
  1. CHAMPIX [Suspect]
     Route: 048

REACTIONS (8)
  - ABDOMINAL DISTENSION [None]
  - ARTHRALGIA [None]
  - BLINDNESS TRANSIENT [None]
  - FEELING COLD [None]
  - HOT FLUSH [None]
  - LOCAL SWELLING [None]
  - PHOTOPSIA [None]
  - RASH [None]
